FAERS Safety Report 4916822-4 (Version None)
Quarter: 2006Q1

REPORT INFORMATION
  Report Type: 
  Country: None (occurrence: None)
  Receive Date: 20060216
  Receipt Date: 20060216
  Transmission Date: 20060701
  Serious: Yes (Death, Hospitalization)
  Sender: FDA-Public Use
  Company Number: None

PATIENT
  Sex: Male
  Weight: 110 kg

DRUGS (8)
  1. CISPLATIN [Suspect]
     Indication: OESOPHAGEAL CANCER METASTATIC
     Dosage: 25 IV
     Route: 042
     Dates: start: 20050420, end: 20051221
  2. IRINOTECAN HCL [Suspect]
     Indication: OESOPHAGEAL CANCER METASTATIC
     Dosage: 55.2 IV
     Route: 042
     Dates: start: 20050420, end: 20051221
  3. CAPECITABINE (MG/M2) D1-14 OF 21-DAY CYCLE [Suspect]
     Indication: OESOPHAGEAL CANCER METASTATIC
     Dosage: 1400 ORAL
     Route: 048
     Dates: start: 20050421, end: 20051227
  4. NEXIUM [Concomitant]
  5. DECADRON SRC [Concomitant]
  6. ZOFRAN [Concomitant]
  7. ASPIRIN [Concomitant]
  8. COMPAZINE [Concomitant]

REACTIONS (20)
  - ALPHA HAEMOLYTIC STREPTOCOCCAL INFECTION [None]
  - APHASIA [None]
  - BACTERAEMIA [None]
  - BIOPSY BRAIN ABNORMAL [None]
  - BRAIN ABSCESS [None]
  - BRAIN OEDEMA [None]
  - CARDIAC FIBRILLATION [None]
  - CHILLS [None]
  - FATIGUE [None]
  - HEADACHE [None]
  - HYPONATRAEMIA [None]
  - INAPPROPRIATE ANTIDIURETIC HORMONE SECRETION [None]
  - INFLAMMATION [None]
  - NECROSIS [None]
  - NUCLEAR MAGNETIC RESONANCE IMAGING ABNORMAL [None]
  - OESOPHAGEAL MASS [None]
  - PULMONARY EMBOLISM [None]
  - PYREXIA [None]
  - TOOTH INFECTION [None]
  - URINE SODIUM INCREASED [None]
